FAERS Safety Report 8876301 (Version 2)
Quarter: 2012Q4

REPORT INFORMATION
  Report Type: 
  Country: JP (occurrence: JP)
  Receive Date: 20121031
  Receipt Date: 20121112
  Transmission Date: 20130627
  Serious: Yes (Other)
  Sender: FDA-Public Use
  Company Number: JP-JNJFOC-20121003869

PATIENT
  Age: 60 Year

DRUGS (10)
  1. RISPERDAL CONSTA [Suspect]
     Indication: PRODUCT USED FOR UNKNOWN INDICATION
     Route: 030
     Dates: start: 20120717, end: 20120731
  2. RISPERDAL CONSTA [Suspect]
     Indication: PRODUCT USED FOR UNKNOWN INDICATION
     Route: 030
     Dates: start: 20120619, end: 20120703
  3. RISPERDAL CONSTA [Suspect]
     Indication: PRODUCT USED FOR UNKNOWN INDICATION
     Route: 030
     Dates: start: 20120814
  4. RISPERDAL [Suspect]
     Indication: PRODUCT USED FOR UNKNOWN INDICATION
     Route: 048
     Dates: start: 201206
  5. RISPERDAL [Suspect]
     Indication: PRODUCT USED FOR UNKNOWN INDICATION
     Route: 048
     Dates: start: 201202
  6. SERENACE [Concomitant]
     Route: 048
  7. SEROQUEL [Concomitant]
     Route: 048
  8. ROHYPNOL [Concomitant]
     Route: 048
  9. AKINETON [Concomitant]
     Route: 048
  10. BARNETIL [Concomitant]
     Route: 048

REACTIONS (1)
  - Hyponatraemia [Recovering/Resolving]
